FAERS Safety Report 9374630 (Version 1)
Quarter: 2013Q2

REPORT INFORMATION
  Report Type: Spontaneous
  Country: US (occurrence: US)
  Receive Date: 20130628
  Receipt Date: 20130628
  Transmission Date: 20140414
  Serious: Yes (Other)
  Sender: FDA-Public Use
  Company Number: US-PFIZER INC-2013191293

PATIENT
  Age: 50 Year
  Sex: Female
  Weight: 87.26 kg

DRUGS (1)
  1. GABAPENTIN [Suspect]
     Indication: NEUROPATHY PERIPHERAL
     Dosage: UNK

REACTIONS (3)
  - Retinal haemorrhage [Unknown]
  - Drug effect incomplete [Unknown]
  - Sedation [Unknown]
